FAERS Safety Report 19953180 (Version 2)
Quarter: 2021Q4

REPORT INFORMATION
  Report Type: Spontaneous
  Country: US (occurrence: US)
  Receive Date: 20211013
  Receipt Date: 20211019
  Transmission Date: 20220303
  Serious: Yes (Other)
  Sender: FDA-Public Use
  Company Number: US-GILEAD-2021-0552296

PATIENT
  Age: 59 Year
  Sex: Male
  Weight: 81.7 kg

DRUGS (1)
  1. TECARTUS [Suspect]
     Active Substance: BREXUCABTAGENE AUTOLEUCEL
     Indication: Mantle cell lymphoma
     Dosage: UNK
     Route: 042
     Dates: start: 20210804

REACTIONS (8)
  - Cytokine release syndrome [Unknown]
  - Acute kidney injury [Unknown]
  - Fatigue [Unknown]
  - Hyponatraemia [Unknown]
  - Hypoxia [Unknown]
  - Tachycardia [Unknown]
  - Neurotoxicity [Unknown]
  - Alanine aminotransferase [Unknown]

NARRATIVE: CASE EVENT DATE: 20210806
